FAERS Safety Report 4409557-8 (Version None)
Quarter: 2004Q3

REPORT INFORMATION
  Report Type: 
  Country: None (occurrence: None)
  Receive Date: 20040728
  Receipt Date: 20040715
  Transmission Date: 20050211
  Serious: Yes (Life-Threatening, Hospitalization)
  Sender: FDA-Public Use
  Company Number: 200415387US

PATIENT
  Sex: Female
  Weight: 53.63 kg

DRUGS (9)
  1. TAXOTERE [Suspect]
     Route: 042
     Dates: start: 20040525, end: 20040706
  2. TARCEVA                                 /USA/ [Suspect]
     Indication: NEOPLASM
     Route: 048
     Dates: start: 20040524, end: 20040621
  3. MULTIVITAMIN [Concomitant]
  4. FOSAMAX [Concomitant]
  5. ATIVAN [Concomitant]
  6. COMPAZINE [Concomitant]
  7. DEXAMETHASONE [Concomitant]
  8. LORAZEPAM [Concomitant]
  9. CLEOCIN T [Concomitant]

REACTIONS (9)
  - BLOOD PH INCREASED [None]
  - COUGH [None]
  - HAEMATOCRIT DECREASED [None]
  - HAEMOGLOBIN DECREASED [None]
  - HYPOXIA [None]
  - PLATELET COUNT DECREASED [None]
  - PLEURITIC PAIN [None]
  - PULMONARY FIBROSIS [None]
  - RED BLOOD CELL COUNT DECREASED [None]
